FAERS Safety Report 4823517-4 (Version None)
Quarter: 2005Q4

REPORT INFORMATION
  Report Type: 
  Country: None (occurrence: None)
  Receive Date: 20051107
  Receipt Date: 20051020
  Transmission Date: 20060501
  Serious: Yes (Death)
  Sender: FDA-Public Use
  Company Number: US_0510123178

PATIENT
  Age: 34 Year

DRUGS (1)
  1. ZYPREXA [Suspect]

REACTIONS (4)
  - CARDIAC ARREST [None]
  - COMPLETED SUICIDE [None]
  - OVERDOSE [None]
  - RESPIRATORY ARREST [None]
